FAERS Safety Report 10959178 (Version 1)
Quarter: 2015Q1

REPORT INFORMATION
  Report Type: Spontaneous
  Country: US (occurrence: US)
  Receive Date: 20150327
  Receipt Date: 20150327
  Transmission Date: 20150721
  Serious: Yes (Death)
  Sender: FDA-Public Use
  Company Number: US-CIPLA LTD.-2015US02346

PATIENT

DRUGS (9)
  1. CITALOPRAM [Suspect]
     Active Substance: CITALOPRAM HYDROBROMIDE
  2. ETHANOL [Suspect]
     Active Substance: ALCOHOL
  3. HYDROXYZINE [Suspect]
     Active Substance: HYDROXYZINE\HYDROXYZINE HYDROCHLORIDE
  4. MIRTAZAPINE. [Suspect]
     Active Substance: MIRTAZAPINE
  5. DILTIAZEM [Suspect]
     Active Substance: DILTIAZEM
  6. METOPROLOL [Suspect]
     Active Substance: METOPROLOL
  7. SALICYLATE [Suspect]
     Active Substance: SALICYLIC ACID
  8. OMEPRAZOLE. [Suspect]
     Active Substance: OMEPRAZOLE
  9. GABAPENTIN. [Suspect]
     Active Substance: GABAPENTIN

REACTIONS (1)
  - Completed suicide [Fatal]
